FAERS Safety Report 7066112-1 (Version None)
Quarter: 2010Q4

REPORT INFORMATION
  Report Type: 
  Country: None (occurrence: None)
  Receive Date: 20101027
  Receipt Date: 20100423
  Transmission Date: 20110411
  Serious: Yes (Disabling, Other)
  Sender: FDA-Public Use
  Company Number: HQWYE388523JUL04

PATIENT
  Sex: Female
  Weight: 59.02 kg

DRUGS (2)
  1. PREMPRO [Suspect]
     Indication: MENOPAUSE
     Dosage: UNKNOWN
     Route: 048
     Dates: start: 20031201, end: 20040301
  2. PREMPHASE 14/14 [Suspect]
     Indication: MENOPAUSE
     Dosage: UNKNOWN
     Route: 048
     Dates: start: 20001201, end: 20030101

REACTIONS (1)
  - BREAST CANCER [None]
